FAERS Safety Report 10048335 (Version 1)
Quarter: 2014Q1

REPORT INFORMATION
  Report Type: Spontaneous
  Country: US (occurrence: US)
  Receive Date: 20140331
  Receipt Date: 20140331
  Transmission Date: 20141002
  Serious: Yes (Other)
  Sender: FDA-Public Use
  Company Number: US-GLAXOSMITHKLINE-A1067241A

PATIENT
  Sex: Female

DRUGS (2)
  1. ARIXTRA [Suspect]
     Indication: PULMONARY EMBOLISM
     Route: 065
     Dates: start: 2004
  2. HEART MEDICATION [Concomitant]

REACTIONS (2)
  - Gastric haemorrhage [Recovered/Resolved]
  - Adverse drug reaction [Unknown]
